FAERS Safety Report 22252987 (Version 6)
Quarter: 2025Q4

REPORT INFORMATION
  Report Type: Report from Study
  Country: CA (occurrence: CA)
  Receive Date: 20230426
  Receipt Date: 20251222
  Transmission Date: 20260118
  Serious: Yes (Other)
  Sender: APOTEX
  Company Number: CA-APOTEX-2023AP007128

PATIENT
  Age: 4 Year
  Sex: Male
  Weight: 36 kg

DRUGS (21)
  1. MYCOPHENOLIC ACID [Suspect]
     Active Substance: MYCOPHENOLIC ACID
     Indication: Product used for unknown indication
     Dosage: 200 MILLIGRAM, BID
     Route: 065
  2. ACTEMRA [Suspect]
     Active Substance: TOCILIZUMAB
     Indication: Transplant rejection
     Dosage: UNK
  3. ACTEMRA [Suspect]
     Active Substance: TOCILIZUMAB
     Dosage: 130 MILLIGRAM
  4. ACTEMRA [Suspect]
     Active Substance: TOCILIZUMAB
     Dosage: 200 MILLIGRAM, ONCE EVERY 4 WEEKS
  5. ACTEMRA [Suspect]
     Active Substance: TOCILIZUMAB
     Dosage: 170 MILLIGRAM, ONCE EVERY 4 WEEKS
  6. ACTEMRA [Suspect]
     Active Substance: TOCILIZUMAB
     Dosage: 170 MILLIGRAM, ONCE EVERY 4 WEEKS FOR THERAPY DURATION OF -97 (UNKNOWN UNITS)
  7. ACTEMRA [Suspect]
     Active Substance: TOCILIZUMAB
     Dosage: 170 MILLIGRAM, ONCE EVERY 4 WEEKS
  8. ACTEMRA [Suspect]
     Active Substance: TOCILIZUMAB
     Dosage: 130 MILLIGRAM ONCE EVERY 4 WEEKS
  9. ACTEMRA [Suspect]
     Active Substance: TOCILIZUMAB
     Dosage: 220 MILLIGRAM, ONCE EVERY 4 WEEKS
  10. ACTEMRA [Suspect]
     Active Substance: TOCILIZUMAB
     Dosage: 256 MILLIGRAM, ONCE EVERY 4 WEEKS
  11. ACTEMRA [Suspect]
     Active Substance: TOCILIZUMAB
     Dosage: 280 MILLIGRAM, ONCE EVERY 4 WEEKS
  12. AMLODIPINE [Concomitant]
     Active Substance: AMLODIPINE BESYLATE
     Indication: Product used for unknown indication
     Dosage: 0.7 MILLIGRAM, BID
     Route: 065
  13. FAMOTIDINE [Concomitant]
     Active Substance: FAMOTIDINE
     Indication: Product used for unknown indication
     Dosage: 8 MILLIGRAM, BID
     Route: 065
  14. FERROUS SULFATE ANHYDROUS [Concomitant]
     Active Substance: FERROUS SULFATE ANHYDROUS
     Indication: Product used for unknown indication
     Dosage: 60 MILLIGRAM, QD
     Route: 065
  15. MAGNESIUM [Concomitant]
     Active Substance: MAGNESIUM
     Indication: Product used for unknown indication
     Dosage: 120 MILLIGRAM, BID
     Route: 065
  16. MAGNESIUM [Concomitant]
     Active Substance: MAGNESIUM
     Dosage: 1 EVERY .5 DAYS
     Route: 065
  17. PREDNISONE [Concomitant]
     Active Substance: PREDNISONE
     Indication: Product used for unknown indication
     Dosage: 3 MILLIGRAM
     Route: 065
  18. SEPTRA [Concomitant]
     Active Substance: SULFAMETHOXAZOLE\TRIMETHOPRIM
     Indication: Product used for unknown indication
     Dosage: 28 MILLIGRAM
     Route: 065
  19. TACROLIMUS [Concomitant]
     Active Substance: TACROLIMUS
     Indication: Product used for unknown indication
     Dosage: 2.1 MILLIGRAM, Q.12H
     Route: 065
  20. VALGANCICLOVIR HYDROCHLORIDE [Concomitant]
     Active Substance: VALGANCICLOVIR HYDROCHLORIDE
     Indication: Product used for unknown indication
     Dosage: 530 MILLIGRAM, QD
     Route: 065
  21. EMLA [Concomitant]
     Active Substance: LIDOCAINE\PRILOCAINE
     Indication: Product used for unknown indication
     Route: 065

REACTIONS (6)
  - Catheter site pain [Recovered/Resolved]
  - Vascular access site haemorrhage [Recovered/Resolved]
  - Weight increased [Recovered/Resolved]
  - Oxygen saturation decreased [Recovered/Resolved]
  - Heart rate increased [Recovered/Resolved]
  - Gastroenteritis [Recovered/Resolved]
